FAERS Safety Report 18756025 (Version 2)
Quarter: 2021Q1

REPORT INFORMATION
  Report Type: Spontaneous
  Country: US (occurrence: US)
  Receive Date: 20210119
  Receipt Date: 20210125
  Transmission Date: 20210419
  Serious: Yes (Death)
  Sender: FDA-Public Use
  Company Number: US-PFIZER INC-2021020784

PATIENT
  Age: 38 Year
  Sex: Female

DRUGS (4)
  1. SODIUM VALPROATE [Concomitant]
     Active Substance: VALPROATE SODIUM
     Dosage: UNK
  2. DIPHENHYDRAMINE. [Concomitant]
     Active Substance: DIPHENHYDRAMINE
     Dosage: 50 MG
     Route: 030
  3. BENZTROPINE MESILATE [Concomitant]
     Active Substance: BENZTROPINE MESYLATE
     Indication: NEUROLEPTIC MALIGNANT SYNDROME
     Dosage: UNK
  4. DROPERIDOL. [Suspect]
     Active Substance: DROPERIDOL
     Dosage: 5 MG
     Route: 030

REACTIONS (1)
  - Death [Fatal]
